FAERS Safety Report 17418481 (Version 2)
Quarter: 2020Q1

REPORT INFORMATION
  Report Type: Spontaneous
  Country: US (occurrence: US)
  Receive Date: 20200214
  Receipt Date: 20200305
  Transmission Date: 20200409
  Serious: No
  Sender: FDA-Public Use
  Company Number: US-LUPIN PHARMACEUTICALS INC.-2020-00518

PATIENT
  Age: 16 Year
  Sex: Female
  Weight: 57 kg

DRUGS (1)
  1. CEPHALEXIN CAPSULES USP, 500 MG [Suspect]
     Active Substance: CEPHALEXIN
     Indication: PARONYCHIA
     Dosage: 500 MILLIGRAM, TID
     Route: 048
     Dates: start: 201909, end: 201909

REACTIONS (1)
  - Eczema [Recovered/Resolved]

NARRATIVE: CASE EVENT DATE: 201909
